FAERS Safety Report 18687927 (Version 1)
Quarter: 2020Q4

REPORT INFORMATION
  Report Type: Report from Study
  Country: BR (occurrence: BR)
  Receive Date: 20201231
  Receipt Date: 20201231
  Transmission Date: 20210114
  Serious: Yes (Other)
  Sender: FDA-Public Use
  Company Number: BR-TAKEDA-BR202010097

PATIENT
  Age: 25 Year
  Sex: Female
  Weight: 56 kg

DRUGS (4)
  1. ICATIBANT [Suspect]
     Active Substance: ICATIBANT ACETATE
     Indication: HEREDITARY ANGIOEDEMA
     Dosage: 30 MG/10 MG/ML
     Route: 065
  2. ICATIBANT [Suspect]
     Active Substance: ICATIBANT ACETATE
     Indication: HEREDITARY ANGIOEDEMA
     Dosage: 30 MG/10 MG/ML
     Route: 065
  3. ICATIBANT [Suspect]
     Active Substance: ICATIBANT ACETATE
     Dosage: 30 MG/10 MG/ML
     Route: 065
     Dates: start: 20200203
  4. ICATIBANT [Suspect]
     Active Substance: ICATIBANT ACETATE
     Dosage: 30 MG/10 MG/ML
     Route: 065
     Dates: start: 20200203

REACTIONS (8)
  - Asthenia [Recovering/Resolving]
  - Pain [Recovering/Resolving]
  - Loss of consciousness [Recovering/Resolving]
  - Pallor [Recovering/Resolving]
  - Chills [Unknown]
  - Malaise [Recovering/Resolving]
  - Hereditary angioedema [Recovered/Resolved]
  - Nausea [Recovering/Resolving]

NARRATIVE: CASE EVENT DATE: 20200702
